FAERS Safety Report 26005556 (Version 1)
Quarter: 2025Q4

REPORT INFORMATION
  Report Type: Spontaneous
  Country: AU (occurrence: AU)
  Receive Date: 20251106
  Receipt Date: 20251106
  Transmission Date: 20260118
  Serious: Yes (Other)
  Sender: AUROBINDO
  Company Number: AU-AUROBINDO-AUR-APL-2025-054704

PATIENT
  Age: 86 Year
  Sex: Male

DRUGS (2)
  1. AZACITIDINE [Suspect]
     Active Substance: AZACITIDINE
     Indication: Product used for unknown indication
     Dosage: UNK
     Route: 065
  2. VENETOCLAX [Suspect]
     Active Substance: VENETOCLAX
     Indication: Product used for unknown indication
     Dosage: UNK
     Route: 065

REACTIONS (12)
  - Acute myeloid leukaemia [Unknown]
  - Cytopenia [Unknown]
  - Febrile neutropenia [Unknown]
  - Pneumocystis jirovecii pneumonia [Unknown]
  - Neuropathy peripheral [Unknown]
  - Anaemia [Unknown]
  - Back pain [Unknown]
  - Dyspnoea [Unknown]
  - Pallor [Unknown]
  - Pyrexia [Unknown]
  - Spinal stenosis [Unknown]
  - Tooth abscess [Unknown]
